FAERS Safety Report 21176725 (Version 1)
Quarter: 2022Q3

REPORT INFORMATION
  Report Type: Spontaneous
  Country: HU (occurrence: HU)
  Receive Date: 20220805
  Receipt Date: 20220805
  Transmission Date: 20221026
  Serious: Yes (Hospitalization, Other)
  Sender: FDA-Public Use
  Company Number: HU-BAYER-2022A060590

PATIENT
  Age: 83 Year
  Sex: Male

DRUGS (16)
  1. XARELTO [Suspect]
     Active Substance: RIVAROXABAN
     Indication: Atrial fibrillation
     Dosage: 20 MG, QD
     Route: 048
     Dates: start: 2019
  2. XARELTO [Suspect]
     Active Substance: RIVAROXABAN
     Indication: Atrial fibrillation
     Dosage: 15 MG, QD
     Route: 048
     Dates: start: 20200801
  3. XARELTO [Suspect]
     Active Substance: RIVAROXABAN
     Indication: Atrial fibrillation
     Dosage: 20 MG, QD
     Route: 048
     Dates: start: 2022
  4. PENTOXIFYLLINE [Concomitant]
     Active Substance: PENTOXIFYLLINE
  5. BETAHISTINE [Concomitant]
     Active Substance: BETAHISTINE
  6. MEFORAL [METFORMIN HYDROCHLORIDE] [Concomitant]
  7. PERINDOPRIL ERBUMINE [Concomitant]
     Active Substance: PERINDOPRIL ERBUMINE
  8. CORDARONE [Concomitant]
     Active Substance: AMIODARONE HYDROCHLORIDE
     Dosage: 200 MG
  9. SPIRONOLACTONE [Concomitant]
     Active Substance: SPIRONOLACTONE
  10. METOPROLOL SUCCINATE [Concomitant]
     Active Substance: METOPROLOL SUCCINATE
     Dosage: 25 MG
  11. TAMSULOSIN [Concomitant]
     Active Substance: TAMSULOSIN
  12. PRENOXDIAZINE HYDROCHLORIDE [Concomitant]
     Active Substance: PRENOXDIAZINE HYDROCHLORIDE
  13. BUTAMIRATE CITRATE [Concomitant]
     Active Substance: BUTAMIRATE CITRATE
  14. TOBRADEX [Concomitant]
     Active Substance: DEXAMETHASONE\TOBRAMYCIN
  15. FINASTERIDE [Concomitant]
     Active Substance: FINASTERIDE
     Dosage: 5 MG
  16. FUROSEMIDE\POTASSIUM CHLORIDE [Concomitant]
     Active Substance: FUROSEMIDE\POTASSIUM CHLORIDE

REACTIONS (9)
  - Right ventricular hypertrophy [Unknown]
  - Pulmonary embolism [Unknown]
  - Asthenia [Unknown]
  - Dyspnoea [Unknown]
  - COVID-19 [Unknown]
  - Pyrexia [Unknown]
  - Throat irritation [Unknown]
  - Anosmia [Unknown]
  - Cough [Unknown]

NARRATIVE: CASE EVENT DATE: 20220301
